FAERS Safety Report 20684626 (Version 3)
Quarter: 2023Q1

REPORT INFORMATION
  Report Type: Spontaneous
  Country: US (occurrence: US)
  Receive Date: 20220407
  Receipt Date: 20230119
  Transmission Date: 20230417
  Serious: No
  Sender: FDA-Public Use
  Company Number: US-PFIZER INC-202101857734

PATIENT
  Age: 70 Year
  Sex: Female

DRUGS (3)
  1. IBRANCE [Suspect]
     Active Substance: PALBOCICLIB
     Indication: Breast cancer female
     Dosage: 125 MG
     Dates: start: 20211202
  2. IBRANCE [Suspect]
     Active Substance: PALBOCICLIB
     Dosage: 100 MG, CYCLIC (ONCE A DAY FOR 21 DAYS WITH 7 DAYS OFF EVERY 28 DAYS)
     Route: 048
     Dates: start: 20220813
  3. IBRANCE [Suspect]
     Active Substance: PALBOCICLIB
     Dosage: 100 MG, CYCLIC (ONCE A DAY FOR 21 DAYS WITH 7 DAYS OFF EVERY 28 DAYS)
     Route: 048
     Dates: start: 20220813

REACTIONS (4)
  - Illness [Recovered/Resolved]
  - Diarrhoea [Unknown]
  - Pyrexia [Recovering/Resolving]
  - Influenza [Recovering/Resolving]
